FAERS Safety Report 8382630-8 (Version None)
Quarter: 2012Q2

REPORT INFORMATION
  Report Type: 
  Country: None (occurrence: None)
  Receive Date: 20120501
  Receipt Date: 20120426
  Transmission Date: 20120825
  Serious: Yes (Other)
  Sender: FDA-Public Use
  Company Number: 2012031655

PATIENT
  Sex: Female

DRUGS (1)
  1. HIZENTRA [Suspect]
     Indication: HYPOGAMMAGLOBULINAEMIA
     Dosage: (4 G 2X/WEEK SUBCUTANEOUS)
     Route: 058
     Dates: start: 20110802

REACTIONS (5)
  - SINUSITIS [None]
  - TRANSIENT ISCHAEMIC ATTACK [None]
  - LOSS OF CONSCIOUSNESS [None]
  - DISORIENTATION [None]
  - MOVEMENT DISORDER [None]
